FAERS Safety Report 10230320 (Version 2)
Quarter: 2014Q2

REPORT INFORMATION
  Report Type: Spontaneous
  Country: JP (occurrence: JP)
  Receive Date: 20140611
  Receipt Date: 20140623
  Transmission Date: 20141212
  Serious: Yes (Hospitalization)
  Sender: FDA-Public Use
  Company Number: JP-SA-2014SA075180

PATIENT
  Age: 76 Year
  Sex: Male

DRUGS (2)
  1. BCG FOR IMMUNOTHERAPY [Suspect]
     Indication: BLADDER CANCER
     Route: 065
  2. BCG FOR IMMUNOTHERAPY [Suspect]
     Indication: BLADDER CANCER
     Route: 065

REACTIONS (5)
  - Reiter^s syndrome [Recovering/Resolving]
  - Pyrexia [Recovering/Resolving]
  - Dysuria [Recovering/Resolving]
  - Erythema [Recovering/Resolving]
  - Swelling [Recovering/Resolving]
